FAERS Safety Report 17043985 (Version 1)
Quarter: 2019Q4

REPORT INFORMATION
  Report Type: Spontaneous
  Country: US (occurrence: US)
  Receive Date: 20191018
  Receipt Date: 20191018
  Transmission Date: 20200122
  Serious: Yes (Hospitalization)
  Sender: FDA-Public Use
  Company Number: None

PATIENT
  Age: 24 Year
  Sex: Male

DRUGS (41)
  1. FUROSEMIDE. [Concomitant]
     Active Substance: FUROSEMIDE
  2. TOBI PODHALER [Concomitant]
     Active Substance: TOBRAMYCIN
  3. ALBUTEROL. [Concomitant]
     Active Substance: ALBUTEROL
  4. AZITHROMYCIN ANHYDROUS. [Concomitant]
     Active Substance: AZITHROMYCIN ANHYDROUS
  5. CREON [Suspect]
     Active Substance: PANCRELIPASE AMYLASE\PANCRELIPASE LIPASE\PANCRELIPASE PROTEASE
  6. FLUTICASONE. [Concomitant]
     Active Substance: FLUTICASONE
  7. HYOSCYAMINE. [Concomitant]
     Active Substance: HYOSCYAMINE
  8. ONDANSETRON [Concomitant]
     Active Substance: ONDANSETRON
  9. PREDNISONE. [Concomitant]
     Active Substance: PREDNISONE
  10. PULMOZYME [Concomitant]
     Active Substance: DORNASE ALFA
  11. SPIRONOLACTONE. [Concomitant]
     Active Substance: SPIRONOLACTONE
  12. TIZANIDINE. [Concomitant]
     Active Substance: TIZANIDINE
  13. PULMOZYME [Suspect]
     Active Substance: DORNASE ALFA
     Indication: CYSTIC FIBROSIS
     Route: 055
     Dates: start: 20141125
  14. AMITRIPTYLINE [Concomitant]
     Active Substance: AMITRIPTYLINE
  15. BUPREN/NALOX [Concomitant]
     Active Substance: BUPRENORPHINE\NALOXONE
  16. GABAPENTIN. [Concomitant]
     Active Substance: GABAPENTIN
  17. GAVILYTE G [Concomitant]
     Active Substance: POLYETHYLENE GLYCOL 3350\POTASSIUM CHLORIDE\SODIUM BICARBONATE\SODIUM CHLORIDE\SODIUM SULFATE ANHYDROUS
  18. LACTULOSE. [Concomitant]
     Active Substance: LACTULOSE
  19. LORATADINE. [Concomitant]
     Active Substance: LORATADINE
  20. RANITIDINE. [Concomitant]
     Active Substance: RANITIDINE
  21. ELIQUIS [Concomitant]
     Active Substance: APIXABAN
  22. CIPROFLOXA [Concomitant]
  23. PHYTONADIONE. [Concomitant]
     Active Substance: PHYTONADIONE
  24. SMZ/TMP DS [Concomitant]
     Active Substance: SULFAMETHOXAZOLE\TRIMETHOPRIM
  25. URSODIOL. [Concomitant]
     Active Substance: URSODIOL
  26. VITAMIN D2 [Concomitant]
     Active Substance: ERGOCALCIFEROL
  27. HEPARIN [Concomitant]
     Active Substance: HEPARIN SODIUM
  28. NITO-BID [Concomitant]
  29. SYMDEKO [Concomitant]
     Active Substance: IVACAFTOR\TEZACAFTOR
  30. ZINC SULFATE. [Concomitant]
     Active Substance: ZINC SULFATE
  31. MAGNESIUM OXIDE. [Concomitant]
     Active Substance: MAGNESIUM OXIDE
  32. PROAIR HFA [Concomitant]
     Active Substance: ALBUTEROL SULFATE
  33. QVAR [Concomitant]
     Active Substance: BECLOMETHASONE DIPROPIONATE
  34. ENSURE [Concomitant]
     Active Substance: AMINO ACIDS\DEXTROSE\ELECTROLYTES NOS\SOYBEAN OIL\VITAMINS
  35. FLUCONAZOLE. [Concomitant]
     Active Substance: FLUCONAZOLE
  36. LINEZOLID. [Concomitant]
     Active Substance: LINEZOLID
  37. ROZEREM [Concomitant]
     Active Substance: RAMELTEON
  38. PANTOPRAZOLE [Concomitant]
     Active Substance: PANTOPRAZOLE
  39. PROCNETHAGAN [Concomitant]
  40. SOD CHL [Suspect]
     Active Substance: SODIUM CHLORIDE
  41. ARIPIPRAZOLE. [Concomitant]
     Active Substance: ARIPIPRAZOLE

REACTIONS (1)
  - Pulmonary congestion [None]

NARRATIVE: CASE EVENT DATE: 20191007
